FAERS Safety Report 6098869-0 (Version None)
Quarter: 2009Q1

REPORT INFORMATION
  Report Type: 
  Country: None (occurrence: None)
  Receive Date: 20090302
  Receipt Date: 20090223
  Transmission Date: 20090719
  Serious: Yes (Other)
  Sender: FDA-Public Use
  Company Number: B0552718A

PATIENT
  Age: 30 Year
  Sex: Female

DRUGS (3)
  1. PAXIL [Suspect]
     Indication: DEPRESSION
     Route: 048
     Dates: start: 20010101
  2. LEXOTAN [Concomitant]
     Indication: ANXIETY
     Route: 048
     Dates: start: 20060829
  3. MUCOSTA [Concomitant]
     Indication: GASTRITIS
     Dosage: 300MG PER DAY
     Route: 048
     Dates: start: 20080101

REACTIONS (11)
  - AFFECT LABILITY [None]
  - CONFUSIONAL STATE [None]
  - DIZZINESS [None]
  - DRUG WITHDRAWAL SYNDROME [None]
  - EYE IRRITATION [None]
  - HYPOAESTHESIA [None]
  - NAUSEA [None]
  - NIGHTMARE [None]
  - PHOTOPSIA [None]
  - SUICIDAL IDEATION [None]
  - TINNITUS [None]
